FAERS Safety Report 5916239-X (Version None)
Quarter: 2008Q4

REPORT INFORMATION
  Report Type: 
  Country: None (occurrence: None)
  Receive Date: 20081013
  Receipt Date: 20080930
  Transmission Date: 20090506
  Serious: Yes (Other)
  Sender: FDA-Public Use
  Company Number: PHHY2008JP21796

PATIENT
  Sex: Male

DRUGS (10)
  1. LAMISIL [Suspect]
     Dosage: 125 MG/DAY
     Route: 048
     Dates: start: 20080907, end: 20080908
  2. ICHIJIKU [Suspect]
     Dosage: 120 G/DAY
     Route: 054
     Dates: start: 20080908, end: 20080908
  3. PRAVASTATIN SODIUM [Concomitant]
     Dosage: 10 MG UNK
     Route: 048
     Dates: start: 20040101
  4. NORVASC [Concomitant]
     Dosage: 5 MG UNK
     Route: 048
     Dates: start: 19970101
  5. ASPIRIN [Concomitant]
     Dosage: 81 MG UNK
     Route: 048
     Dates: start: 19970101
  6. THEOLONG [Concomitant]
     Dosage: 200 MG UNK
     Route: 048
     Dates: start: 20040101
  7. SINGULAIR [Concomitant]
     Dosage: 10 MG UNK
     Route: 048
     Dates: start: 20060101
  8. SULTANOL [Concomitant]
     Dosage: UNK
     Dates: start: 20010101
  9. NIZORAL [Concomitant]
     Dosage: UNK
     Dates: start: 20080907
  10. ZEFNART [Concomitant]
     Dosage: UNK
     Dates: start: 20080907

REACTIONS (9)
  - ABDOMINAL DISCOMFORT [None]
  - ANOREXIA [None]
  - DEFAECATION URGENCY [None]
  - DIARRHOEA [None]
  - DRY MOUTH [None]
  - DYSURIA [None]
  - GASTROINTESTINAL MOTILITY DISORDER [None]
  - THIRST [None]
  - URINARY RETENTION [None]
